FAERS Safety Report 5743371-6 (Version None)
Quarter: 2008Q2

REPORT INFORMATION
  Report Type: 
  Country: None (occurrence: None)
  Receive Date: 20080516
  Receipt Date: 20080516
  Transmission Date: 20081010
  Serious: Yes (Hospitalization, Disabling)
  Sender: FDA-Public Use
  Company Number: None

PATIENT
  Age: 76 Year
  Sex: Female

DRUGS (1)
  1. PANCURONIUM BROMIDE [Suspect]
     Indication: NEUROMUSCULAR BLOCKING THERAPY
     Dosage: 4 MG ONE TIME ONLY IV BOLUS
     Route: 040
     Dates: start: 20080504, end: 20080504

REACTIONS (3)
  - ENDOTRACHEAL INTUBATION [None]
  - MEDICATION ERROR [None]
  - WRONG DRUG ADMINISTERED [None]
